FAERS Safety Report 4552824-8 (Version None)
Quarter: 2005Q1

REPORT INFORMATION
  Report Type: 
  Country: None (occurrence: None)
  Receive Date: 20050114
  Receipt Date: 20050107
  Transmission Date: 20050727
  Serious: Yes (Hospitalization)
  Sender: FDA-Public Use
  Company Number: US-ROCHE-392033

PATIENT
  Age: 54 Year
  Sex: Female

DRUGS (1)
  1. TICLID [Suspect]
     Route: 048
     Dates: start: 19970915, end: 19970915

REACTIONS (3)
  - PLATELET COUNT DECREASED [None]
  - TRANSIENT ISCHAEMIC ATTACK [None]
  - URTICARIA [None]
